FAERS Safety Report 5733045-X (Version None)
Quarter: 2008Q2

REPORT INFORMATION
  Report Type: 
  Country: None (occurrence: None)
  Receive Date: 20080509
  Receipt Date: 20080501
  Transmission Date: 20081010
  Serious: No
  Sender: FDA-Public Use
  Company Number: IE-BAXTER-2008BH004595

PATIENT
  Age: 53 Year
  Sex: Female

DRUGS (8)
  1. GAMMAGARD LIQUID [Suspect]
     Indication: ASTHMA
     Route: 042
     Dates: start: 20080328, end: 20080328
  2. GAMMAGARD LIQUID [Suspect]
     Indication: OFF LABEL USE
     Route: 042
     Dates: start: 20080328, end: 20080328
  3. UNIPHYL [Concomitant]
  4. IDEOS [Concomitant]
  5. BONIVA [Concomitant]
  6. TELFAST /SCH/ [Concomitant]
  7. SERETIDE DISKUS [Concomitant]
  8. VENTOLIN [Concomitant]

REACTIONS (5)
  - CHEST DISCOMFORT [None]
  - DYSPNOEA [None]
  - FLUSHING [None]
  - OCULAR HYPERAEMIA [None]
  - URTICARIA [None]
